FAERS Safety Report 24372110 (Version 1)
Quarter: 2024Q3

REPORT INFORMATION
  Report Type: Spontaneous
  Country: US (occurrence: US)
  Receive Date: 20240927
  Receipt Date: 20240927
  Transmission Date: 20241017
  Serious: No
  Sender: MERCK
  Company Number: US-009507513-2409USA009119

PATIENT
  Sex: Female
  Weight: 76.2 kg

DRUGS (27)
  1. WINREVAIR [Suspect]
     Active Substance: SOTATERCEPT-CSRK
     Indication: Product used for unknown indication
     Dosage: UNK
     Route: 058
  2. REMODULIN [Suspect]
     Active Substance: TREPROSTINIL
     Indication: Pulmonary arterial hypertension
     Dosage: 0.077 MICROGRAM PER KILOGRAM, CONTINUOUS
     Route: 042
     Dates: start: 20220209
  3. ACYCLOVIR [Concomitant]
     Active Substance: ACYCLOVIR
  4. OMEPRAZOLE [Concomitant]
     Active Substance: OMEPRAZOLE
  5. DICLOFENAC SODIUM [Concomitant]
     Active Substance: DICLOFENAC\DICLOFENAC SODIUM
  6. VITAMINS [Concomitant]
     Active Substance: VITAMINS
  7. CYANOCOBALAMINUM [Concomitant]
  8. SINGULAIR [Concomitant]
     Active Substance: MONTELUKAST SODIUM
  9. INFED [Concomitant]
     Active Substance: IRON DEXTRAN
  10. LORAZEPAM [Concomitant]
     Active Substance: LORAZEPAM
  11. ALBUTEROL SULFATE [Concomitant]
     Active Substance: ALBUTEROL SULFATE
  12. TADALAFIL [Concomitant]
     Active Substance: TADALAFIL
  13. VITAMIN D2 [Concomitant]
     Active Substance: ERGOCALCIFEROL
  14. ELIQUIS [Concomitant]
     Active Substance: APIXABAN
  15. FLONASE ALLERGY RELIEF [Concomitant]
     Active Substance: FLUTICASONE PROPIONATE
  16. OPSUMIT [Concomitant]
     Active Substance: MACITENTAN
  17. ORENCIA [Concomitant]
     Active Substance: ABATACEPT
  18. ROPINIROLE [Concomitant]
     Active Substance: ROPINIROLE
  19. CEVIMELINE [Concomitant]
     Active Substance: CEVIMELINE
  20. TRAZODONE [Concomitant]
     Active Substance: TRAZODONE HYDROCHLORIDE
  21. OXYGEN [Concomitant]
     Active Substance: OXYGEN
  22. PREDNISONE [Concomitant]
     Active Substance: PREDNISONE
  23. FERROUS SULFATE [Concomitant]
     Active Substance: FERROUS SULFATE
  24. EPINEPHRINE [Concomitant]
     Active Substance: EPINEPHRINE
  25. DIGOXIN [Concomitant]
     Active Substance: DIGOXIN
  26. MARINOL [Concomitant]
     Active Substance: DRONABINOL
  27. OXYBUTYNIN [Concomitant]
     Active Substance: OXYBUTYNIN\OXYBUTYNIN CHLORIDE

REACTIONS (2)
  - Haemorrhage [Unknown]
  - Increased appetite [Unknown]
